FAERS Safety Report 6688009-9 (Version None)
Quarter: 2010Q2

REPORT INFORMATION
  Report Type: 
  Country: None (occurrence: None)
  Receive Date: 20100420
  Receipt Date: 20100412
  Transmission Date: 20101027
  Serious: Yes (Death)
  Sender: FDA-Public Use
  Company Number: BR-SANOFI-AVENTIS-200815400EU

PATIENT
  Age: 76 Year
  Sex: Female

DRUGS (21)
  1. ENOXAPARIN SODIUM [Suspect]
     Indication: DEEP VEIN THROMBOSIS
     Dates: start: 20080902, end: 20080905
  2. ENOXAPARIN SODIUM [Suspect]
     Dates: start: 20080910, end: 20080916
  3. ACENOCOUMAROL [Suspect]
     Indication: DEEP VEIN THROMBOSIS
     Dates: start: 20080904, end: 20080905
  4. ACENOCOUMAROL [Suspect]
     Dates: start: 20080910, end: 20080910
  5. ACENOCOUMAROL [Suspect]
     Dates: start: 20080912, end: 20080916
  6. ACENOCOUMAROL [Suspect]
     Dates: start: 20080917, end: 20080917
  7. RENITEC /NET/ [Concomitant]
     Indication: HYPERTENSION
     Route: 048
     Dates: start: 20050101, end: 20080919
  8. FOLIC ACID [Concomitant]
     Route: 048
     Dates: start: 20080911, end: 20080917
  9. FOLIC ACID [Concomitant]
     Route: 048
     Dates: start: 20080918, end: 20080920
  10. CARVEDILOL [Concomitant]
     Indication: CARDIOMYOPATHY
     Route: 048
     Dates: start: 20070701, end: 20080908
  11. CARVEDILOL [Concomitant]
     Route: 048
     Dates: start: 20080912, end: 20080919
  12. CYANOCOBALAMIN/PYRIDOXINE/THIAMINE [Concomitant]
     Indication: VITAMIN SUPPLEMENTATION
     Route: 048
     Dates: start: 20080911, end: 20080913
  13. CYANOCOBALAMIN/PYRIDOXINE/THIAMINE [Concomitant]
     Route: 048
     Dates: start: 20080918, end: 20080918
  14. LOSEC /SWE/ [Concomitant]
     Indication: PROPHYLAXIS
     Route: 048
     Dates: start: 20020101, end: 20080902
  15. LOSEC /SWE/ [Concomitant]
     Route: 048
     Dates: start: 20080917, end: 20080920
  16. PLASIL ^MERRELL DOW^ [Concomitant]
     Indication: NAUSEA
     Route: 042
     Dates: start: 20080917, end: 20080918
  17. PLASIL ^MERRELL DOW^ [Concomitant]
     Indication: VOMITING
     Route: 042
     Dates: start: 20080917, end: 20080918
  18. PLASIL ^MERRELL DOW^ [Concomitant]
     Route: 042
     Dates: start: 20080918, end: 20080919
  19. PLASIL ^MERRELL DOW^ [Concomitant]
     Route: 042
     Dates: start: 20080918, end: 20080919
  20. QUESTRAN [Concomitant]
     Route: 048
     Dates: start: 20080701, end: 20080920
  21. QUESTRAN [Concomitant]
     Route: 048
     Dates: start: 20080807, end: 20080902

REACTIONS (1)
  - PULMONARY EMBOLISM [None]
